FAERS Safety Report 6020150-6 (Version None)
Quarter: 2008Q4

REPORT INFORMATION
  Report Type: 
  Country: None (occurrence: None)
  Receive Date: 20081226
  Receipt Date: 20081212
  Transmission Date: 20090506
  Serious: Yes (Life-Threatening, Hospitalization, Other)
  Sender: FDA-Public Use
  Company Number: DE-BAYER-DE-2006-038160

PATIENT
  Age: 66 Year
  Sex: Female
  Weight: 105 kg

DRUGS (18)
  1. MAGNEVIST [Suspect]
     Indication: ANGIOGRAM
     Route: 042
     Dates: start: 20050126, end: 20050126
  2. NOVORAPID [Concomitant]
     Indication: DRUG USE FOR UNKNOWN INDICATION
  3. LAXOBERAL ^BOEHRINGER INGELHEIM^ [Concomitant]
     Indication: DRUG USE FOR UNKNOWN INDICATION
  4. DEKRISTOL [Concomitant]
     Indication: DRUG USE FOR UNKNOWN INDICATION
  5. VITAMINS WITH MINERALS [Concomitant]
     Indication: DRUG USE FOR UNKNOWN INDICATION
  6. SODIUM BICARBONATE [Concomitant]
     Indication: DRUG USE FOR UNKNOWN INDICATION
  7. CALCIUM ACETATE [Concomitant]
     Indication: DRUG USE FOR UNKNOWN INDICATION
  8. DIGITOXIN TAB [Concomitant]
     Indication: DRUG USE FOR UNKNOWN INDICATION
  9. MARCUMAR [Concomitant]
     Dates: end: 20061012
  10. INSULIN BASAL [Concomitant]
     Indication: DRUG USE FOR UNKNOWN INDICATION
  11. PANTOZOL [Concomitant]
     Indication: DRUG USE FOR UNKNOWN INDICATION
  12. CERTOPARIN SODIUM /01691801/ [Concomitant]
     Indication: DRUG USE FOR UNKNOWN INDICATION
  13. TEMAZEPAM [Concomitant]
     Indication: DRUG USE FOR UNKNOWN INDICATION
  14. VALORON N /01617301/ [Concomitant]
     Indication: DRUG USE FOR UNKNOWN INDICATION
  15. NEURONTIN [Concomitant]
     Indication: DRUG USE FOR UNKNOWN INDICATION
  16. MAGNESIUM VERLA DRAGEES [Concomitant]
     Indication: DRUG USE FOR UNKNOWN INDICATION
  17. FERRLECIT /GFR/ [Concomitant]
     Indication: DRUG USE FOR UNKNOWN INDICATION
  18. ARANESP [Concomitant]
     Indication: DRUG USE FOR UNKNOWN INDICATION

REACTIONS (5)
  - ACUTE PHASE REACTION [None]
  - CARDIOVASCULAR DISORDER [None]
  - CHILLS [None]
  - LYMPHOPENIA [None]
  - SEPSIS [None]
